FAERS Safety Report 18386072 (Version 1)
Quarter: 2020Q4

REPORT INFORMATION
  Report Type: Spontaneous
  Country: US (occurrence: US)
  Receive Date: 20201013
  Receipt Date: 20201013
  Transmission Date: 20210114
  Serious: Yes (Hospitalization)
  Sender: FDA-Public Use
  Company Number: None

PATIENT
  Age: 25 Year
  Sex: Male
  Weight: 79.7 kg

DRUGS (3)
  1. LEXAPRO [Concomitant]
     Active Substance: ESCITALOPRAM OXALATE
  2. REMICADE [Suspect]
     Active Substance: INFLIXIMAB
  3. METHYLPHENIDATE HCL (CONCERTA) [Concomitant]

REACTIONS (1)
  - Small intestinal obstruction [None]

NARRATIVE: CASE EVENT DATE: 20200131
